FAERS Safety Report 5048410-6 (Version None)
Quarter: 2006Q3

REPORT INFORMATION
  Report Type: 
  Country: None (occurrence: None)
  Receive Date: 20060711
  Receipt Date: 20060630
  Transmission Date: 20061208
  Serious: Yes (Death, Hospitalization)
  Sender: FDA-Public Use
  Company Number: US-MERCK-0607USA00562

PATIENT
  Age: 74 Year
  Sex: Female

DRUGS (5)
  1. ZOCOR [Suspect]
     Route: 048
  2. ATORVASTATIN CALCIUM [Concomitant]
     Route: 048
  3. CYCLOSPORINE [Suspect]
     Route: 065
  4. AZATHIOPRINE [Concomitant]
     Route: 065
  5. PREDNISONE [Concomitant]
     Route: 065

REACTIONS (6)
  - CLOSTRIDIUM DIFFICILE COLITIS [None]
  - DEATH [None]
  - PLEURAL EFFUSION [None]
  - RENAL FAILURE [None]
  - RHABDOMYOLYSIS [None]
  - THERAPEUTIC AGENT TOXICITY [None]
